FAERS Safety Report 5899743-2 (Version None)
Quarter: 2008Q3

REPORT INFORMATION
  Report Type: 
  Country: None (occurrence: None)
  Receive Date: 20080926
  Receipt Date: 20080918
  Transmission Date: 20090109
  Serious: Yes (Other)
  Sender: FDA-Public Use
  Company Number: US-BAYER-200833906NA

PATIENT
  Sex: Female

DRUGS (1)
  1. MIRENA [Suspect]
     Indication: DRUG USE FOR UNKNOWN INDICATION
     Dates: end: 20080918

REACTIONS (5)
  - ACNE [None]
  - DEPRESSION [None]
  - DYSPAREUNIA [None]
  - HAEMORRHAGIC CYST [None]
  - PELVIC PAIN [None]
